FAERS Safety Report 6819579-5 (Version None)
Quarter: 2010Q3

REPORT INFORMATION
  Report Type: 
  Country: None (occurrence: None)
  Receive Date: 20100701
  Receipt Date: 20090831
  Transmission Date: 20110219
  Serious: No
  Sender: FDA-Public Use
  Company Number: US-TEVA-200975USA

PATIENT
  Sex: Female
  Weight: 82.174 kg

DRUGS (5)
  1. AZILECT [Suspect]
     Indication: PARKINSON'S DISEASE
     Dosage: 0.5 MG DAILY
     Route: 048
  2. SERTRALINE [Concomitant]
  3. LISINOPRIL [Concomitant]
  4. GABAPENTIN [Concomitant]
  5. VICODIN [Concomitant]

REACTIONS (2)
  - DYSARTHRIA [None]
  - GAIT DISTURBANCE [None]
